FAERS Safety Report 14350213 (Version 1)
Quarter: 2018Q1

REPORT INFORMATION
  Report Type: Spontaneous
  Country: JP (occurrence: JP)
  Receive Date: 20180104
  Receipt Date: 20180104
  Transmission Date: 20180509
  Serious: Yes (Other)
  Sender: FDA-Public Use
  Company Number: JP-ELI_LILLY_AND_COMPANY-JP201712011546

PATIENT
  Age: 88 Year
  Sex: Female

DRUGS (2)
  1. FORTEO [Suspect]
     Active Substance: TERIPARATIDE
     Indication: PRODUCT USED FOR UNKNOWN INDICATION
     Dosage: UNK
     Route: 058
     Dates: start: 201705, end: 20171223
  2. MEXITIL [Concomitant]
     Active Substance: MEXILETINE HYDROCHLORIDE
     Indication: ARRHYTHMIA
     Dosage: UNK, BID
     Route: 048

REACTIONS (8)
  - Interstitial lung disease [Unknown]
  - Dizziness [Unknown]
  - Hepatic cirrhosis [Unknown]
  - Flank pain [Recovered/Resolved]
  - Ocular hyperaemia [Recovered/Resolved]
  - Drug dose omission [Recovered/Resolved]
  - Oral mucosa erosion [Not Recovered/Not Resolved]
  - Gout [Not Recovered/Not Resolved]

NARRATIVE: CASE EVENT DATE: 2017
